FAERS Safety Report 11197240 (Version 1)
Quarter: 2015Q2

REPORT INFORMATION
  Report Type: Spontaneous
  Country: US (occurrence: US)
  Receive Date: 20150617
  Receipt Date: 20150617
  Transmission Date: 20150821
  Serious: No
  Sender: FDA-Public Use
  Company Number: US-SA-2015SA010634

PATIENT
  Age: 33 Year
  Sex: Female

DRUGS (2)
  1. CEREZYME [Suspect]
     Active Substance: IMIGLUCERASE
     Indication: GAUCHER^S DISEASE
     Route: 065
     Dates: start: 20150122, end: 20150122
  2. ELELYSO [Concomitant]
     Active Substance: TALIGLUCERASE ALFA
     Dosage: DOSE: APPROX 100 ML
     Route: 042

REACTIONS (3)
  - Dizziness [Unknown]
  - Urticaria [Unknown]
  - Hypersensitivity [Unknown]

NARRATIVE: CASE EVENT DATE: 20150122
